FAERS Safety Report 5589818-X (Version None)
Quarter: 2008Q1

REPORT INFORMATION
  Report Type: 
  Country: None (occurrence: None)
  Receive Date: 20080110
  Receipt Date: 20080110
  Transmission Date: 20080703
  Serious: Yes (Other)
  Sender: FDA-Public Use
  Company Number: None

PATIENT
  Age: 53 Year
  Sex: Female
  Weight: 49.8957 kg

DRUGS (1)
  1. FOSAMAX [Suspect]
     Indication: OSTEOPENIA
     Dosage: 70 MGS. WEEKLY PO
     Route: 048
     Dates: start: 20071028, end: 20071230

REACTIONS (5)
  - ARTHRALGIA [None]
  - MUSCULOSKELETAL PAIN [None]
  - PAIN [None]
  - ROTATOR CUFF SYNDROME [None]
  - TENDON DISORDER [None]
